FAERS Safety Report 9133925 (Version 1)
Quarter: 2013Q1

REPORT INFORMATION
  Report Type: Spontaneous
  Country: US (occurrence: US)
  Receive Date: 20130119
  Receipt Date: 20130119
  Transmission Date: 20140127
  Serious: No
  Sender: FDA-Public Use
  Company Number: US-ALLERGAN-1200598US

PATIENT
  Sex: Female

DRUGS (4)
  1. BOTOX COSMETIC [Suspect]
     Indication: SKIN WRINKLING
     Dosage: 24 UNITS, SINGLE GLABELLAR
     Route: 030
     Dates: start: 20120103, end: 20120103
  2. CYMBALTA [Concomitant]
     Dosage: UNK
  3. ALBUTEROL                          /00139501/ [Concomitant]
     Dosage: UNK
  4. DICLOFENAL OMEGA 3 [Concomitant]
     Dosage: UNK

REACTIONS (1)
  - Eyelid ptosis [Unknown]
